FAERS Safety Report 26149744 (Version 1)
Quarter: 2025Q4

REPORT INFORMATION
  Report Type: Report from Study
  Country: IL (occurrence: IL)
  Receive Date: 20251212
  Receipt Date: 20251212
  Transmission Date: 20260117
  Serious: Yes (Hospitalization, Other)
  Sender: ALEXION PHARMACEUTICALS
  Company Number: IL-ALXN-A202311149

PATIENT
  Age: 1 Year
  Sex: Male

DRUGS (20)
  1. KANUMA [Suspect]
     Active Substance: SEBELIPASE ALFA
     Indication: Lysosomal acid lipase deficiency
     Dosage: UNK, QW
     Dates: start: 20190927, end: 20210222
  2. KANUMA [Suspect]
     Active Substance: SEBELIPASE ALFA
     Dosage: UNK, QW
     Dates: start: 20210518, end: 20210614
  3. KANUMA [Suspect]
     Active Substance: SEBELIPASE ALFA
     Dosage: UNK, QW
     Dates: start: 20210615, end: 20221108
  4. KANUMA [Suspect]
     Active Substance: SEBELIPASE ALFA
     Dosage: UNK, QW
     Dates: start: 20221115
  5. ADEK [Concomitant]
     Indication: Hypovitaminosis
     Dosage: 1 ML, QD
  6. CALCILESS [Concomitant]
     Indication: Electrolyte imbalance
     Dosage: 100 MG, BID
  7. SANDOZ CALCIUM + D [Concomitant]
     Indication: Electrolyte imbalance
     Dosage: 300 MG, BID
  8. CEFUROXIME [Concomitant]
     Active Substance: CEFUROXIME
     Indication: Urinary tract infection
     Dosage: 200 MG, BID
  9. ELTROXIN LF [Concomitant]
     Indication: Hypothyroidism
     Dosage: 50 MG, QD
  10. ELTROXIN LF [Concomitant]
     Dosage: 25 MG, QD
  11. ELTROXIN LF [Concomitant]
     Dosage: 35 MG, QD
  12. FLAGYL [Concomitant]
     Active Substance: METRONIDAZOLE\METRONIDAZOLE HYDROCHLORIDE
     Indication: Gastroenteritis
     Dosage: 120 MG, TID
  13. FLAGYL [Concomitant]
     Active Substance: METRONIDAZOLE\METRONIDAZOLE HYDROCHLORIDE
     Indication: Rotavirus infection
  14. FERRIPEL [Concomitant]
     Indication: Iron deficiency
     Dosage: 30 MG, QD
  15. FERRIPEL [Concomitant]
     Indication: Anaemia
     Dosage: 42.5 MG, QD
  16. ERGOCALCIFEROL [Concomitant]
     Active Substance: ERGOCALCIFEROL
     Indication: Vitamin D deficiency
     Dosage: 2000 IU, QD
  17. ERGOCALCIFEROL [Concomitant]
     Active Substance: ERGOCALCIFEROL
     Dosage: 600 IU, QD
  18. ERTAPENEM [Concomitant]
     Active Substance: ERTAPENEM
     Indication: Bacteraemia
     Dosage: UNK
  19. SOPA K [Concomitant]
     Indication: Hypokalaemia
     Dosage: 25 MEQ, QD
  20. VANCOMYCIN [Concomitant]
     Active Substance: VANCOMYCIN
     Indication: Bacteraemia
     Dosage: 150 MG, TID

REACTIONS (2)
  - Pneumonia [Recovered/Resolved]
  - Sepsis [Recovered/Resolved]

NARRATIVE: CASE EVENT DATE: 20230514
